FAERS Safety Report 9309463 (Version 2)
Quarter: 2013Q4

REPORT INFORMATION
  Report Type: Spontaneous
  Country: US (occurrence: US)
  Receive Date: 20130525
  Receipt Date: 20131126
  Transmission Date: 20140711
  Serious: No
  Sender: FDA-Public Use
  Company Number: US-BRISTOL-MYERS SQUIBB COMPANY-18585489

PATIENT
  Age: 70 Year
  Sex: Female
  Weight: 78.91 kg

DRUGS (5)
  1. BYDUREON [Suspect]
     Indication: TYPE 2 DIABETES MELLITUS
     Dosage: LOT#73097?EXP:DEC2013
     Route: 058
     Dates: start: 20130117
  2. BYDUREON [Suspect]
     Indication: TYPE 2 DIABETES MELLITUS
     Route: 058
     Dates: start: 2012, end: 2012
  3. BYDUREON [Suspect]
     Indication: TYPE 2 DIABETES MELLITUS
     Route: 058
     Dates: start: 201301
  4. METFORMIN ER [Concomitant]
     Indication: TYPE 2 DIABETES MELLITUS
     Route: 048
  5. INSULIN [Concomitant]
     Indication: TYPE 2 DIABETES MELLITUS
     Route: 058

REACTIONS (2)
  - Weight decreased [Not Recovered/Not Resolved]
  - Injection site pain [Unknown]
